FAERS Safety Report 12108641 (Version 1)
Quarter: 2016Q1

REPORT INFORMATION
  Report Type: Spontaneous
  Country: US (occurrence: None)
  Receive Date: 20160222
  Receipt Date: 20160222
  Transmission Date: 20160526
  Serious: Yes (Life-Threatening, Hospitalization)
  Sender: FDA-Public Use
  Company Number: None

PATIENT
  Age: 77 Year
  Sex: Male
  Weight: 100.25 kg

DRUGS (7)
  1. FINASTERID [Concomitant]
  2. FISH OIL [Concomitant]
     Active Substance: FISH OIL
  3. VITAMIN C [Concomitant]
     Active Substance: ASCORBIC ACID
  4. AMLODOPINE BESYLATE [Concomitant]
  5. RED RICE YEAST [Concomitant]
     Active Substance: DIETARY SUPPLEMENT
  6. ALIMTA [Suspect]
     Active Substance: PEMETREXED DISODIUM
     Indication: LUNG NEOPLASM MALIGNANT
     Dosage: CARBOPLATON
     Dates: start: 20160210, end: 20160210
  7. FOLIC ACID. [Concomitant]
     Active Substance: FOLIC ACID

REACTIONS (3)
  - Pneumonia [None]
  - Platelet count decreased [None]
  - Hallucination, visual [None]

NARRATIVE: CASE EVENT DATE: 20160210
